FAERS Safety Report 9461935 (Version 1)
Quarter: 2013Q3

REPORT INFORMATION
  Report Type: Spontaneous
  Country: US (occurrence: None)
  Receive Date: 20130815
  Receipt Date: 20130815
  Transmission Date: 20140515
  Serious: No
  Sender: FDA-Public Use
  Company Number: None

PATIENT
  Age: 4 Year
  Sex: Female

DRUGS (1)
  1. TEV-TROPIN [Suspect]
     Indication: DWARFISM
     Dosage: 0.5MG DAILY SQ
     Route: 058
     Dates: start: 20130425

REACTIONS (1)
  - Abnormal sleep-related event [None]
